FAERS Safety Report 7874291-9 (Version None)
Quarter: 2011Q4

REPORT INFORMATION
  Report Type: 
  Country: None (occurrence: None)
  Receive Date: 20111030
  Receipt Date: 20110518
  Transmission Date: 20120403
  Serious: No
  Sender: FDA-Public Use
  Company Number: US-AMGEN-USASP2011025756

PATIENT
  Age: 37 Year
  Sex: Female

DRUGS (3)
  1. ENBREL [Suspect]
     Indication: PSORIATIC ARTHROPATHY
     Dosage: 50 MG, QWK
     Dates: start: 20110501
  2. ENBREL [Suspect]
     Indication: FIBROMYALGIA
  3. ENBREL [Suspect]
     Indication: OSTEOARTHRITIS

REACTIONS (6)
  - COUGH [None]
  - ARTHRALGIA [None]
  - PULMONARY CONGESTION [None]
  - CONTUSION [None]
  - INJECTION SITE HAEMATOMA [None]
  - WHEEZING [None]
